FAERS Safety Report 25776883 (Version 1)
Quarter: 2025Q3

REPORT INFORMATION
  Report Type: Spontaneous
  Country: US (occurrence: US)
  Receive Date: 20250909
  Receipt Date: 20250909
  Transmission Date: 20251021
  Serious: No
  Sender: DOMPE FARMACEUTICI
  Company Number: US-FARMAPROD-202503-1025

PATIENT
  Sex: Female

DRUGS (5)
  1. OXERVATE [Suspect]
     Active Substance: CENEGERMIN-BKBJ
     Indication: Neurotrophic keratopathy
     Route: 047
     Dates: start: 20250312
  2. OXERVATE [Suspect]
     Active Substance: CENEGERMIN-BKBJ
  3. LENALIDOMIDE [Concomitant]
     Active Substance: LENALIDOMIDE
  4. OFLOXACIN [Concomitant]
     Active Substance: OFLOXACIN
  5. SYSTANE (HYPROMELLOSE 2910 (4000 MPA.S)) [Concomitant]
     Active Substance: HYPROMELLOSE 2910 (4000 MPA.S)

REACTIONS (2)
  - Eye pain [Unknown]
  - Eye ulcer [Unknown]
